FAERS Safety Report 6236119-2 (Version None)
Quarter: 2009Q2

REPORT INFORMATION
  Report Type: 
  Country: None (occurrence: None)
  Receive Date: 20090619
  Receipt Date: 20090611
  Transmission Date: 20091009
  Serious: Yes (Hospitalization)
  Sender: FDA-Public Use
  Company Number: SE-PFIZER INC-2009179778

PATIENT

DRUGS (13)
  1. SOMATROPIN [Suspect]
     Indication: HYPOPITUITARISM
     Dosage: 0.9 MG, 1X/DAY
     Route: 058
     Dates: start: 20021204
  2. ATENOLOL [Suspect]
     Dosage: 25 MG/24H
  3. CLOZAPINE [Suspect]
     Dosage: 150 MG/24H
  4. CITALOPRAM [Suspect]
     Dosage: 20 MG/24H
  5. EGAZIL DURETTER [Suspect]
     Dosage: 0.2 MG/24H
  6. ALVEDON [Concomitant]
     Indication: ANALGESIC THERAPY
     Dosage: 500 MG, AS NEEDED
     Dates: start: 20020108
  7. BEHEPAN [Concomitant]
     Indication: VITAMIN B12 DEFICIENCY
     Dosage: 1 MG, EVERY 3 MONTHS
     Dates: start: 20070206
  8. DEXTROPROPOXYPHENE NAPSILATE [Concomitant]
     Indication: ANALGESIC THERAPY
     Dosage: 50 MG, AS NEEDED
     Dates: start: 20020108
  9. FEMASEKVENS [Concomitant]
     Indication: HYPOGONADISM
     Dosage: 1 UNK, UNK
     Dates: start: 20060803
  10. HYDROCORTISON [Concomitant]
     Indication: BLOOD CORTISOL DECREASED
     Dosage: 30 MG/24H, UNK
     Dates: start: 20060927
  11. LEVOTHYROXINE SODIUM [Concomitant]
     Indication: HYPOTHYROIDISM
     Dosage: 125 UG, 1X/DAY
     Dates: start: 20050921
  12. SIMVASTATIN [Concomitant]
     Indication: HYPERLIPIDAEMIA
     Dosage: 40 MG, 2X/DAY
     Dates: start: 20050418
  13. TROMBYL [Concomitant]
     Indication: ANTICOAGULANT THERAPY
     Dosage: 160 MG/24H, UNK

REACTIONS (2)
  - ACCIDENTAL EXPOSURE [None]
  - LOSS OF CONSCIOUSNESS [None]
